FAERS Safety Report 5371367-5 (Version None)
Quarter: 2007Q2

REPORT INFORMATION
  Report Type: 
  Country: None (occurrence: None)
  Receive Date: 20070622
  Receipt Date: 20070615
  Transmission Date: 20071010
  Serious: Yes (Death, Hospitalization)
  Sender: FDA-Public Use
  Company Number: DE-JNJFOC-20070402528

PATIENT
  Age: 73 Year
  Sex: Male
  Weight: 77 kg

DRUGS (19)
  1. DECITABINE (DECITABINE) LYOPHILIZED POWDER [Suspect]
     Indication: ACUTE MYELOID LEUKAEMIA
     Dates: start: 20070117, end: 20070119
  2. DOLASETRON (DOLASETRON) UNSPECIFIED [Concomitant]
  3. FUROSEMIDE (FUROSEMIDE) UNSPECIFIED [Concomitant]
  4. PREDNISOLONE [Concomitant]
  5. HYDROCORTISONE (HYDROCORTISONE) UNSPECIFIED [Concomitant]
  6. TAZOBACTAM (TAZOBACTAM) UNSPECIFIED [Concomitant]
  7. ESOMEPRAZOLE (ESOMEPRAZOLE) UNSPECIFIED [Concomitant]
  8. LISINOPRIL (LISINOPRIL) UNSPECIFIED [Concomitant]
  9. BISOPROLOL (BISOPROLOL) UNSPECIFIED [Concomitant]
  10. ALLOPURINOL (ALLOPURINOL) UNSPECIFIED [Concomitant]
  11. FLUCONAZOLE (FLUCONAZOLE) UNSPECIFIED [Concomitant]
  12. TORASEMIDE (TORASEMIDE) UNSPECIFIED [Concomitant]
  13. PREDNISOLONE [Concomitant]
  14. SERENO REPEUS EXTRACT (ALL OTHER THERAPEUTIC PRODUCTS) UNSPECIFIED [Concomitant]
  15. POTASSIUM (POTASSIUM) UNSPECIFIED [Concomitant]
  16. ACETYLCYSTEIN (ACETYLCYSTEINE) UNSPECIFIED [Concomitant]
  17. CIPROFLOXACIN (CIPROFLOXACIN) UNSPECIFIED [Concomitant]
  18. COTRIMAZOLE (BACTRIM) UNSPECIFIED [Concomitant]
  19. PIPERACILLIN (PIPERACILLIN) UNSPECIFIED [Concomitant]

REACTIONS (2)
  - FEBRILE NEUTROPENIA [None]
  - GENERAL PHYSICAL HEALTH DETERIORATION [None]
